FAERS Safety Report 10967219 (Version 1)
Quarter: 2015Q1

REPORT INFORMATION
  Report Type: Spontaneous
  Country: NL (occurrence: NL)
  Receive Date: 20150330
  Receipt Date: 20150330
  Transmission Date: 20150721
  Serious: Yes (Other)
  Sender: FDA-Public Use
  Company Number: NL-TEVA-549588ISR

PATIENT
  Age: 64 Year
  Sex: Male
  Weight: 80 kg

DRUGS (2)
  1. OXALIPLATIN INFLUS [Suspect]
     Active Substance: OXALIPLATIN
     Indication: COLORECTAL CANCER
     Dosage: EVERY 3 WEEKS 250 MG
     Route: 042
     Dates: start: 20141028
  2. CAPECITABINE TABLET FO 500MG [Concomitant]
     Active Substance: CAPECITABINE
     Dosage: 2 TIMES DAILY 4 PIECES, EXTRA INFO: DURING 14 DAYS OF 21 DAYS
     Route: 048
     Dates: start: 20141028

REACTIONS (4)
  - Rash [Recovered/Resolved]
  - Swollen tongue [Recovered/Resolved with Sequelae]
  - Lip swelling [Recovered/Resolved with Sequelae]
  - Ocular hyperaemia [Recovered/Resolved]

NARRATIVE: CASE EVENT DATE: 20150216
